FAERS Safety Report 9315380 (Version 1)
Quarter: 2013Q2

REPORT INFORMATION
  Report Type: Report from Study
  Country: US (occurrence: US)
  Receive Date: 20130529
  Receipt Date: 20130529
  Transmission Date: 20140414
  Serious: Yes (Other)
  Sender: FDA-Public Use
  Company Number: US-ABBOTT-13P-163-1093301-00

PATIENT
  Sex: Female
  Weight: 127.12 kg

DRUGS (5)
  1. HUMIRA [Suspect]
     Indication: PSORIASIS
     Dates: start: 2010, end: 201212
  2. HUMIRA [Suspect]
     Indication: PSORIATIC ARTHROPATHY
     Dates: start: 201301, end: 201305
  3. LEVOTHYROXINE [Concomitant]
     Indication: HYPOTHYROIDISM
  4. PRADAXA [Concomitant]
     Indication: ANTICOAGULANT THERAPY
  5. SOTALOL [Concomitant]
     Indication: ATRIAL FIBRILLATION

REACTIONS (3)
  - Arthralgia [Recovered/Resolved]
  - Drug ineffective [Not Recovered/Not Resolved]
  - Psoriasis [Not Recovered/Not Resolved]
